FAERS Safety Report 5690677-5 (Version None)
Quarter: 2008Q1

REPORT INFORMATION
  Report Type: 
  Country: None (occurrence: None)
  Receive Date: 20080331
  Receipt Date: 20080331
  Transmission Date: 20080703
  Serious: Yes (Other)
  Sender: FDA-Public Use
  Company Number: None

PATIENT
  Age: 4 Year
  Sex: Male
  Weight: 18.1439 kg

DRUGS (1)
  1. SINGULAIR [Suspect]
     Indication: NASAL CONGESTION
     Dosage: 4 MG. 1X PER DAY PO APPROXIMATELY 2 1/2 YEARS
     Route: 048

REACTIONS (4)
  - ADVERSE DRUG REACTION [None]
  - AGITATION [None]
  - INSOMNIA [None]
  - MOOD SWINGS [None]
